FAERS Safety Report 23244522 (Version 4)
Quarter: 2024Q2

REPORT INFORMATION
  Report Type: Spontaneous
  Country: US (occurrence: US)
  Receive Date: 20231130
  Receipt Date: 20240403
  Transmission Date: 20240716
  Serious: Yes (Other)
  Sender: FDA-Public Use
  Company Number: US-BRISTOL-MYERS SQUIBB COMPANY-2023-167731

PATIENT
  Age: 67 Year
  Sex: Female

DRUGS (3)
  1. LENALIDOMIDE [Suspect]
     Active Substance: LENALIDOMIDE
     Indication: Plasma cell myeloma
     Route: 048
     Dates: end: 202308
  2. LENALIDOMIDE [Suspect]
     Active Substance: LENALIDOMIDE
     Route: 048
  3. LENALIDOMIDE [Suspect]
     Active Substance: LENALIDOMIDE
     Dosage: TAKE 1 CAPSULE BY MOUTH EVERY DAY FOR 14 DAYS THEN 14 DAYS OFF
     Route: 048
     Dates: start: 20221028

REACTIONS (15)
  - Full blood count decreased [Recovering/Resolving]
  - Platelet count increased [Recovering/Resolving]
  - Off label use [Unknown]
  - Rash pruritic [Recovering/Resolving]
  - Bronchitis [Recovering/Resolving]
  - Diarrhoea [Not Recovered/Not Resolved]
  - Headache [Recovering/Resolving]
  - Fatigue [Recovering/Resolving]
  - Gastrointestinal pain [Recovering/Resolving]
  - Somnolence [Recovering/Resolving]
  - Poor quality sleep [Recovering/Resolving]
  - Nausea [Recovering/Resolving]
  - Decreased appetite [Recovering/Resolving]
  - Dyspnoea [Recovering/Resolving]
  - Pruritus [Recovering/Resolving]

NARRATIVE: CASE EVENT DATE: 20231001
